FAERS Safety Report 5329391-4 (Version None)
Quarter: 2007Q2

REPORT INFORMATION
  Report Type: 
  Country: None (occurrence: None)
  Receive Date: 20070518
  Receipt Date: 20070510
  Transmission Date: 20071010
  Serious: Yes (Hospitalization)
  Sender: FDA-Public Use
  Company Number: FR-ABBOTT-07P-056-0368146-00

PATIENT
  Age: 31 Year
  Sex: Male
  Weight: 63 kg

DRUGS (2)
  1. KALETRA [Suspect]
     Indication: HIV INFECTION
     Route: 048
     Dates: start: 20060919, end: 20070425
  2. TACROLIMUS [Suspect]
     Indication: RENAL TRANSPLANT
     Route: 048
     Dates: start: 20060901

REACTIONS (2)
  - ACCIDENTAL OVERDOSE [None]
  - DRUG LEVEL INCREASED [None]
